FAERS Safety Report 5388618-3 (Version None)
Quarter: 2007Q3

REPORT INFORMATION
  Report Type: 
  Country: None (occurrence: None)
  Receive Date: 20070716
  Receipt Date: 20051201
  Transmission Date: 20080115
  Serious: Yes (Hospitalization)
  Sender: FDA-Public Use
  Company Number: US-PFIZER INC-2003191494US

PATIENT
  Sex: Female
  Weight: 63 kg

DRUGS (8)
  1. CAMPTOSAR [Suspect]
     Indication: COLORECTAL CANCER METASTATIC
     Route: 042
     Dates: start: 20031208, end: 20040105
  2. PLACEBO [Suspect]
     Indication: COLORECTAL CANCER METASTATIC
     Route: 048
     Dates: start: 20031208, end: 20040126
  3. CAPECITABINE [Suspect]
     Indication: COLORECTAL CANCER METASTATIC
     Route: 048
     Dates: start: 20031208, end: 20040118
  4. PRINIVIL [Concomitant]
     Indication: HYPERTENSION
     Route: 048
  5. TOPROL-XL [Concomitant]
     Indication: HYPERTENSION
     Route: 048
  6. CARDURA [Concomitant]
     Indication: HYPERTENSION
     Route: 048
  7. NEXIUM [Concomitant]
     Indication: GASTROOESOPHAGEAL REFLUX DISEASE
     Route: 048
  8. VICODIN [Concomitant]
     Indication: PAIN
     Route: 048

REACTIONS (7)
  - ANAEMIA [None]
  - CONFUSIONAL STATE [None]
  - DIARRHOEA [None]
  - LEUKOPENIA [None]
  - NAUSEA [None]
  - NEUTROPENIA [None]
  - VOMITING [None]
